FAERS Safety Report 6832943-3 (Version None)
Quarter: 2010Q3

REPORT INFORMATION
  Report Type: 
  Country: None (occurrence: None)
  Receive Date: 20100712
  Receipt Date: 20070320
  Transmission Date: 20110219
  Serious: No
  Sender: FDA-Public Use
  Company Number: US-PFIZER INC-2007024413

PATIENT
  Sex: Female
  Weight: 49.9 kg

DRUGS (3)
  1. CHANTIX [Suspect]
     Indication: SMOKING CESSATION THERAPY
     Route: 048
     Dates: start: 20070301, end: 20070319
  2. ALL OTHER THERAPEUTIC PRODUCTS [Concomitant]
  3. ELAVIL [Concomitant]

REACTIONS (6)
  - DRY SKIN [None]
  - ERYTHEMA [None]
  - HYPERSENSITIVITY [None]
  - RASH MACULO-PAPULAR [None]
  - SCAB [None]
  - SKIN EXFOLIATION [None]
